FAERS Safety Report 8622065-3 (Version None)
Quarter: 2012Q3

REPORT INFORMATION
  Report Type: 
  Country: None (occurrence: None)
  Receive Date: 20120825
  Receipt Date: 20120817
  Transmission Date: 20120928
  Serious: Yes (Death, Life-Threatening)
  Sender: FDA-Public Use
  Company Number: JP-ROCHE-1028733

PATIENT
  Sex: Male
  Weight: 56 kg

DRUGS (10)
  1. ACTEMRA [Suspect]
     Indication: CASTLEMAN'S DISEASE
     Route: 041
     Dates: start: 20110829, end: 20120721
  2. PREDNISOLONE [Concomitant]
     Indication: CASTLEMAN'S DISEASE
     Route: 048
     Dates: start: 20111029
  3. PRECIPITATED CALCIUM CARBONATE [Concomitant]
     Indication: RENAL FAILURE CHRONIC
     Route: 048
     Dates: start: 20110328
  4. LEVOTHYROXINE SODIUM [Concomitant]
     Indication: HYPOTHYROIDISM
     Route: 048
     Dates: start: 20110720
  5. ALLEGRA [Concomitant]
     Indication: PRURITUS
     Route: 048
     Dates: start: 20111111
  6. LASIX [Concomitant]
     Indication: HYPERTENSION
     Route: 048
     Dates: start: 20110713
  7. SULFAMETHOXAZOLE AND TRIMETHOPRIM [Concomitant]
     Indication: PROPHYLAXIS
     Route: 048
     Dates: start: 20111101
  8. MICARDIS [Concomitant]
     Indication: HYPERTENSION
     Route: 048
  9. VILDAGLIPTIN [Concomitant]
     Indication: DIABETES MELLITUS
     Route: 048
     Dates: start: 20111020
  10. BISOPROLOL FUMARATE [Concomitant]
     Indication: HYPERTENSION
     Route: 048
     Dates: start: 20091225

REACTIONS (9)
  - INFECTION [None]
  - ARTHRALGIA [None]
  - INJURY [None]
  - DERMATITIS ALLERGIC [None]
  - ERYTHEMA [None]
  - PRURITUS [None]
  - WHITE BLOOD CELL COUNT INCREASED [None]
  - FALL [None]
  - DEATH [None]
